FAERS Safety Report 13905449 (Version 1)
Quarter: 2017Q3

REPORT INFORMATION
  Report Type: Spontaneous
  Country: DE (occurrence: DE)
  Receive Date: 20170825
  Receipt Date: 20170825
  Transmission Date: 20171127
  Serious: Yes (Disabling, Other)
  Sender: FDA-Public Use
  Company Number: GXKR2017DE004146

PATIENT
  Age: 1 Day
  Sex: Female
  Weight: 2.32 kg

DRUGS (4)
  1. BELLA HEXAL [Concomitant]
     Active Substance: CYPROTERONE ACETATE\ETHINYL ESTRADIOL
     Indication: FOETAL EXPOSURE DURING PREGNANCY
     Dosage: MATERNAL DOSE: 2 MG, QD
     Route: 064
     Dates: start: 20160109, end: 20160204
  2. LEVETIRACETAM. [Suspect]
     Active Substance: LEVETIRACETAM
     Dosage: MATERNAL DOSE: 2250 MG QD
     Route: 064
     Dates: end: 20161003
  3. OSPOLOT [Suspect]
     Active Substance: SULTHIAME
     Indication: FOETAL EXPOSURE DURING PREGNANCY
     Dosage: MATERNAL DOSE: 150 MG BID
     Route: 064
     Dates: start: 20160109, end: 20161003
  4. LEVETIRACETAM. [Suspect]
     Active Substance: LEVETIRACETAM
     Indication: FOETAL EXPOSURE DURING PREGNANCY
     Dosage: MATERNAL DOSE: 1000 MG BID
     Route: 064
     Dates: start: 20160109

REACTIONS (2)
  - Congenital cyst [Not Recovered/Not Resolved]
  - Small for dates baby [Unknown]

NARRATIVE: CASE EVENT DATE: 20161003
